FAERS Safety Report 8792504 (Version 1)
Quarter: 2012Q4

REPORT INFORMATION
  Report Type: 
  Country: US (occurrence: US)
  Receive Date: 20120918
  Receipt Date: 20120918
  Transmission Date: 20130627
  Serious: Yes (Hospitalization, Other)
  Sender: FDA-Public Use
  Company Number: US-AMGEN-USASP2012058860

PATIENT
  Age: 33 Year
  Sex: Female

DRUGS (1)
  1. ENBREL [Suspect]
     Indication: RHEUMATOID ARTHRITIS
     Dosage: 50 mg, qwk
     Route: 058
     Dates: start: 20030723, end: 20120615

REACTIONS (3)
  - Rheumatoid arthritis [Recovered/Resolved]
  - Depression [Not Recovered/Not Resolved]
  - Victim of sexual abuse [Recovered/Resolved]
